FAERS Safety Report 10537463 (Version 1)
Quarter: 2014Q4

REPORT INFORMATION
  Report Type: Spontaneous
  Country: US (occurrence: None)
  Receive Date: 20141022
  Receipt Date: 20141022
  Transmission Date: 20150529
  Serious: No
  Sender: FDA-Public Use
  Company Number: None

PATIENT
  Age: 53 Year
  Sex: Female
  Weight: 68.95 kg

DRUGS (2)
  1. OPANA 10MG IR GENERIC [Suspect]
     Active Substance: OXYMORPHONE HYDROCHLORIDE
     Indication: POST LAMINECTOMY SYNDROME
     Dosage: 1 PILL
     Route: 048
  2. OPANA 10MG IR GENERIC [Suspect]
     Active Substance: OXYMORPHONE HYDROCHLORIDE
     Indication: SCIATICA
     Dosage: 1 PILL
     Route: 048

REACTIONS (1)
  - Drug ineffective [None]
